FAERS Safety Report 7108799-0 (Version None)
Quarter: 2010Q4

REPORT INFORMATION
  Report Type: 
  Country: None (occurrence: None)
  Receive Date: 20101117
  Receipt Date: 20101106
  Transmission Date: 20110411
  Serious: Yes (Other)
  Sender: FDA-Public Use
  Company Number: BR-GENENTECH-306891

PATIENT
  Sex: Female
  Weight: 70 kg

DRUGS (10)
  1. MABTHERA [Suspect]
     Indication: RHEUMATOID ARTHRITIS
     Dosage: 1000 MG, UNK
     Route: 042
     Dates: start: 20090630, end: 20100611
  2. EUTHYROX [Concomitant]
     Indication: HYPOTHYROIDISM
     Route: 048
  3. OMEPRAZOLE [Concomitant]
     Indication: GASTRITIS
     Dosage: 20 MG, UNK
     Route: 048
  4. DOMPERIDONE [Concomitant]
     Indication: GASTRITIS
     Route: 048
  5. CAL D [Concomitant]
     Indication: OSTEOPOROSIS
     Route: 048
  6. MULTIVITAMIN [Concomitant]
     Indication: RETINAL DEGENERATION
  7. BONIVA [Concomitant]
     Indication: OSTEOPOROSIS
     Dosage: UNK
     Route: 042
     Dates: start: 20100308
  8. PARACETAMOL [Concomitant]
     Indication: PREMEDICATION
     Dosage: 750 MG, UNK
     Route: 048
  9. DIPHENHYDRAMINE HCL [Concomitant]
     Indication: PREMEDICATION
     Dosage: 50 MG, UNK
     Route: 042
  10. METHYLPREDNISOLONE [Concomitant]
     Indication: PREMEDICATION
     Dosage: 100 MG, UNK
     Route: 042

REACTIONS (14)
  - ABDOMINAL PAIN [None]
  - ANGIOEDEMA [None]
  - BRADYCARDIA [None]
  - ERYTHEMA [None]
  - GENERALISED ERYTHEMA [None]
  - LOSS OF CONSCIOUSNESS [None]
  - NAUSEA [None]
  - OXYGEN SATURATION DECREASED [None]
  - PRURITUS [None]
  - PYREXIA [None]
  - SWELLING FACE [None]
  - SYNCOPE [None]
  - URTICARIA [None]
  - VOMITING [None]
